FAERS Safety Report 7656262-0 (Version None)
Quarter: 2011Q3

REPORT INFORMATION
  Report Type: 
  Country: None (occurrence: None)
  Receive Date: 20110804
  Receipt Date: 20110725
  Transmission Date: 20111222
  Serious: Yes (Hospitalization)
  Sender: FDA-Public Use
  Company Number: US-ELI_LILLY_AND_COMPANY-US201008003018

PATIENT
  Sex: Male

DRUGS (10)
  1. ALTACE [Concomitant]
     Dosage: 2.5 MG, QD
     Route: 048
  2. GLIPIZIDE [Concomitant]
     Dosage: 5 MG, BID
     Route: 048
  3. LIPITOR [Concomitant]
     Dosage: 80 MG, QD
     Route: 048
  4. ANDROGEL [Concomitant]
     Dosage: 5 G, EACH MORNING
     Route: 061
  5. ASPIRIN [Concomitant]
     Dosage: 81 MG, EACH MORNING
     Route: 048
  6. LOPID [Concomitant]
     Dosage: 600 MG, BID
     Route: 048
  7. GLUCOPHAGE [Concomitant]
     Dosage: 1000 MG, BID
     Route: 048
  8. VIAGRA [Concomitant]
     Dosage: 50 MG, PRN
  9. BYETTA [Suspect]
     Indication: TYPE 2 DIABETES MELLITUS
     Dosage: 5 UG, BID
     Route: 058
     Dates: start: 20080721
  10. GLUCOPHAGE [Concomitant]
     Dosage: 850 MG, BID
     Route: 048

REACTIONS (2)
  - HYPERTRIGLYCERIDAEMIA [None]
  - PANCREATITIS ACUTE [None]
